FAERS Safety Report 21517202 (Version 2)
Quarter: 2022Q4

REPORT INFORMATION
  Report Type: Report from Study
  Country: US (occurrence: US)
  Receive Date: 20221028
  Receipt Date: 20221229
  Transmission Date: 20230113
  Serious: Yes (Other)
  Sender: FDA-Public Use
  Company Number: US-NOVARTISPH-NVSC2022US238872

PATIENT
  Age: 53 Year
  Sex: Male

DRUGS (2)
  1. COSENTYX [Suspect]
     Active Substance: SECUKINUMAB
     Indication: Psoriatic arthropathy
     Dosage: UNK UNK, QW
     Route: 058
     Dates: start: 20220929
  2. COSENTYX [Suspect]
     Active Substance: SECUKINUMAB
     Dosage: UNK UNK, QW (3RD DOSE)
     Route: 058
     Dates: start: 20221013

REACTIONS (5)
  - Loss of consciousness [Recovered/Resolved]
  - Influenza [Not Recovered/Not Resolved]
  - Illness [Unknown]
  - Cough [Unknown]
  - Injury [Recovering/Resolving]

NARRATIVE: CASE EVENT DATE: 20221001
